FAERS Safety Report 19011695 (Version 1)
Quarter: 2021Q1

REPORT INFORMATION
  Report Type: Spontaneous
  Country: US (occurrence: US)
  Receive Date: 20210316
  Receipt Date: 20210316
  Transmission Date: 20210420
  Serious: No
  Sender: FDA-Public Use
  Company Number: US-UCBSA-2020024597

PATIENT
  Age: 30 Year
  Sex: Male

DRUGS (3)
  1. CARBAMAZEPINE. [Concomitant]
     Active Substance: CARBAMAZEPINE
     Indication: STATUS EPILEPTICUS
     Dosage: UNKNOWN DOSE
  2. BRIVARACETAM [Suspect]
     Active Substance: BRIVARACETAM
     Indication: STATUS EPILEPTICUS
     Dosage: UNKNOWN DOSE
  3. BRIVARACETAM [Suspect]
     Active Substance: BRIVARACETAM
     Indication: OFF LABEL USE

REACTIONS (1)
  - No adverse event [Unknown]
